FAERS Safety Report 18869959 (Version 5)
Quarter: 2021Q3

REPORT INFORMATION
  Report Type: Spontaneous
  Country: US (occurrence: US)
  Receive Date: 20210209
  Receipt Date: 20210712
  Transmission Date: 20211014
  Serious: Yes (Hospitalization)
  Sender: FDA-Public Use
  Company Number: US-BAUSCH-BL-2021-005009

PATIENT
  Sex: Male

DRUGS (4)
  1. VENLAFAXINE [Interacting]
     Active Substance: VENLAFAXINE HYDROCHLORIDE
     Indication: PRODUCT USED FOR UNKNOWN INDICATION
     Route: 064
  2. BUPROPION HYDROCHLORIDE. [Suspect]
     Active Substance: BUPROPION HYDROCHLORIDE
     Indication: PRODUCT USED FOR UNKNOWN INDICATION
     Route: 064
  3. QUETIAPINE. [Interacting]
     Active Substance: QUETIAPINE
     Indication: PRODUCT USED FOR UNKNOWN INDICATION
     Route: 064
  4. GABAPENTIN. [Suspect]
     Active Substance: GABAPENTIN
     Indication: PRODUCT USED FOR UNKNOWN INDICATION
     Route: 064

REACTIONS (10)
  - Neonatal toxicity [Recovered/Resolved]
  - Hypotonia neonatal [Recovered/Resolved]
  - Feeling jittery [Recovered/Resolved]
  - Hypertonia neonatal [Recovered/Resolved]
  - Drug interaction [Recovered/Resolved]
  - Clonus [Recovered/Resolved]
  - Cerebral disorder [Recovered/Resolved]
  - Maternal exposure during pregnancy [Unknown]
  - Encephalopathy neonatal [Recovered/Resolved]
  - Hyperreflexia [Recovered/Resolved]
